FAERS Safety Report 5639870-8 (Version None)
Quarter: 2008Q1

REPORT INFORMATION
  Report Type: 
  Country: None (occurrence: None)
  Receive Date: 20080227
  Receipt Date: 20080218
  Transmission Date: 20080703
  Serious: Yes (Hospitalization)
  Sender: FDA-Public Use
  Company Number: FR-JNJFOC-20080203645

PATIENT
  Age: 74 Year
  Sex: Male

DRUGS (9)
  1. DURAGESIC-100 [Suspect]
     Indication: DRUG USE FOR UNKNOWN INDICATION
     Route: 062
  2. COZAAR [Concomitant]
     Indication: DRUG USE FOR UNKNOWN INDICATION
  3. ATENOLOL [Concomitant]
     Indication: DRUG USE FOR UNKNOWN INDICATION
  4. FLECAINIDE ACETATE [Concomitant]
     Indication: DRUG USE FOR UNKNOWN INDICATION
  5. PREVISCAN [Concomitant]
     Indication: DRUG USE FOR UNKNOWN INDICATION
  6. PROZAC [Concomitant]
     Indication: DRUG USE FOR UNKNOWN INDICATION
  7. PERMIXON [Concomitant]
     Indication: DRUG USE FOR UNKNOWN INDICATION
  8. LANZOR [Concomitant]
     Indication: DRUG USE FOR UNKNOWN INDICATION
  9. SOLUPRED [Concomitant]
     Indication: DRUG USE FOR UNKNOWN INDICATION

REACTIONS (3)
  - DISTURBANCE IN ATTENTION [None]
  - NIGHT SWEATS [None]
  - WEIGHT DECREASED [None]
